FAERS Safety Report 23664972 (Version 1)
Quarter: 2024Q1

REPORT INFORMATION
  Report Type: Report from Study
  Country: TW (occurrence: TW)
  Receive Date: 20240322
  Receipt Date: 20240322
  Transmission Date: 20240410
  Serious: Yes (Hospitalization)
  Sender: FDA-Public Use
  Company Number: TW-BIOGEN-2024BI01256344

PATIENT
  Age: 31 Year
  Sex: Female
  Weight: 51 kg

DRUGS (5)
  1. TECFIDERA [Suspect]
     Active Substance: DIMETHYL FUMARATE
     Indication: Multiple sclerosis
     Route: 050
     Dates: start: 20240118, end: 20240124
  2. TECFIDERA [Suspect]
     Active Substance: DIMETHYL FUMARATE
     Dosage: 360 MILLIGRAM - PRESUMING COMBINATION OF 120 MILLIGRAM (1) AND 240 MILLIGRAM (1)
     Route: 050
     Dates: start: 20240201, end: 20240207
  3. TECFIDERA [Suspect]
     Active Substance: DIMETHYL FUMARATE
     Indication: Multiple sclerosis
     Route: 050
     Dates: start: 20240125, end: 20240131
  4. TECFIDERA [Suspect]
     Active Substance: DIMETHYL FUMARATE
     Dosage: 360 MILLIGRAM - PRESUMING COMBINATION OF 120 MILLIGRAM (1) AND 240 MILLIGRAM (1)
     Route: 050
     Dates: start: 20240201, end: 20240207
  5. TECFIDERA [Suspect]
     Active Substance: DIMETHYL FUMARATE
     Route: 050
     Dates: start: 20240208

REACTIONS (3)
  - Hypoaesthesia [Unknown]
  - Muscular weakness [Unknown]
  - Off label use [Unknown]

NARRATIVE: CASE EVENT DATE: 20240118
